FAERS Safety Report 15190971 (Version 3)
Quarter: 2019Q3

REPORT INFORMATION
  Report Type: Report from Study
  Country: BE (occurrence: BE)
  Receive Date: 20180724
  Receipt Date: 20190813
  Transmission Date: 20191004
  Serious: No
  Sender: FDA-Public Use
  Company Number: BE-SAKK-2018SA157338AA

PATIENT
  Age: 33 Year
  Sex: Female
  Weight: 79 kg

DRUGS (4)
  1. BRUFEN [IBUPROFEN] [Concomitant]
     Active Substance: IBUPROFEN
     Indication: PREMEDICATION
     Dosage: UNK, UNK
     Route: 065
  2. CORTISONE [Concomitant]
     Active Substance: CORTISONE
     Dosage: UNK, UNK
     Route: 065
  3. ALGLUCOSIDASE ALFA [Suspect]
     Active Substance: ALGLUCOSIDASE ALFA
     Indication: GLYCOGEN STORAGE DISEASE TYPE II
     Dosage: 20 MG/KG, QOW
     Route: 041
     Dates: start: 20160530
  4. ZYRTEC [Concomitant]
     Active Substance: CETIRIZINE HYDROCHLORIDE
     Indication: PREMEDICATION
     Dosage: UNK, UNK
     Route: 065

REACTIONS (1)
  - Facial pain [Recovered/Resolved]

NARRATIVE: CASE EVENT DATE: 20180515
